FAERS Safety Report 19929792 (Version 1)
Quarter: 2021Q4

REPORT INFORMATION
  Report Type: Report from Study
  Country: US (occurrence: US)
  Receive Date: 20211007
  Receipt Date: 20211007
  Transmission Date: 20220304
  Serious: Yes (Death)
  Sender: FDA-Public Use
  Company Number: 2021A759356

PATIENT
  Sex: Female

DRUGS (4)
  1. LYNPARZA [Suspect]
     Active Substance: OLAPARIB
     Indication: Metastases to lung
     Route: 048
     Dates: start: 20210716
  2. LYNPARZA [Suspect]
     Active Substance: OLAPARIB
     Indication: Metastases to liver
     Route: 048
     Dates: start: 20210716
  3. LYNPARZA [Suspect]
     Active Substance: OLAPARIB
     Indication: Breast cancer female
     Route: 048
     Dates: start: 20210716
  4. LYNPARZA [Suspect]
     Active Substance: OLAPARIB
     Indication: Cholangiocarcinoma
     Route: 048
     Dates: start: 20210716

REACTIONS (1)
  - Death [Fatal]
